FAERS Safety Report 7903698-6 (Version None)
Quarter: 2011Q4

REPORT INFORMATION
  Report Type: 
  Country: None (occurrence: None)
  Receive Date: 20111027
  Receipt Date: 20110617
  Transmission Date: 20120403
  Serious: Yes (Other)
  Sender: FDA-Public Use
  Company Number: 2011-2045

PATIENT
  Age: 14 Year
  Sex: Male
  Weight: 33 kg

DRUGS (5)
  1. FORCALIN (DEXMETHYLPHENIDATE HYDROCHLORIDE) [Concomitant]
  2. TRAZODONE HCL [Concomitant]
  3. INCRELEX [Suspect]
     Indication: BODY HEIGHT BELOW NORMAL
     Dosage: SEE IMAGE
     Route: 058
     Dates: start: 20110106, end: 20110106
  4. INCRELEX [Suspect]
     Indication: BODY HEIGHT BELOW NORMAL
     Dosage: SEE IMAGE
     Route: 058
     Dates: start: 20110107
  5. INCRELEX [Suspect]
     Indication: BODY HEIGHT BELOW NORMAL
     Dosage: SEE IMAGE
     Route: 058
     Dates: start: 20101223, end: 20110105

REACTIONS (1)
  - HYPOGLYCAEMIA [None]
